FAERS Safety Report 16969089 (Version 1)
Quarter: 2019Q4

REPORT INFORMATION
  Report Type: Report from Study
  Country: US (occurrence: US)
  Receive Date: 20191029
  Receipt Date: 20191029
  Transmission Date: 20200122
  Serious: Yes (Other)
  Sender: FDA-Public Use
  Company Number: US-ROCHE-2446338

PATIENT
  Age: 62 Year
  Sex: Female
  Weight: 65.38 kg

DRUGS (3)
  1. OCREVUS [Suspect]
     Active Substance: OCRELIZUMAB
     Indication: MULTIPLE SCLEROSIS
     Dosage: GIVEN TWO WEEKS APART
     Route: 042
     Dates: start: 201807
  2. OCREVUS [Suspect]
     Active Substance: OCRELIZUMAB
     Route: 042
     Dates: start: 20190916
  3. OCREVUS [Suspect]
     Active Substance: OCRELIZUMAB
     Dosage: EVERY SIX MONTHS
     Route: 042
     Dates: start: 20190916

REACTIONS (9)
  - Malaise [Unknown]
  - Hallucination [Unknown]
  - Dizziness [Unknown]
  - Genital herpes [Unknown]
  - Eye pain [Unknown]
  - Fall [Unknown]
  - Candida infection [Unknown]
  - Nausea [Unknown]
  - Vomiting [Unknown]

NARRATIVE: CASE EVENT DATE: 201901
